FAERS Safety Report 6539700-6 (Version None)
Quarter: 2010Q1

REPORT INFORMATION
  Report Type: 
  Country: None (occurrence: None)
  Receive Date: 20100115
  Receipt Date: 20100111
  Transmission Date: 20100710
  Serious: Yes (Death, Hospitalization, Disabling)
  Sender: FDA-Public Use
  Company Number: GB-JNJFOC-20071006974

PATIENT
  Age: 72 Year
  Sex: Female

DRUGS (6)
  1. RISPERDAL [Suspect]
     Indication: DEPRESSION
     Route: 048
  2. RISPERDAL [Suspect]
     Indication: AGITATION
     Route: 048
  3. MIRTAZAPINE [Suspect]
     Indication: DEPRESSION
     Route: 048
  4. MIRTAZAPINE [Suspect]
     Indication: AGITATION
     Route: 048
  5. LORAZEPAM [Concomitant]
     Indication: AGITATION
     Route: 048
  6. QUETIAPINE FUMARATE [Concomitant]
     Indication: AGITATION
     Route: 048

REACTIONS (1)
  - CEREBROVASCULAR ACCIDENT [None]
